FAERS Safety Report 14539338 (Version 2)
Quarter: 2018Q3

REPORT INFORMATION
  Report Type: Report from Study
  Country: US (occurrence: US)
  Receive Date: 20180216
  Receipt Date: 20180811
  Transmission Date: 20181010
  Serious: No
  Sender: FDA-Public Use
  Company Number: PHEH2018US005733

PATIENT
  Sex: Male

DRUGS (3)
  1. COSENTYX [Suspect]
     Active Substance: SECUKINUMAB
     Indication: PSORIASIS
     Dosage: 300 OT, Q4W
     Route: 065
     Dates: start: 20170620
  2. COSENTYX [Suspect]
     Active Substance: SECUKINUMAB
     Dosage: 300 OT, Q4W
     Route: 065
     Dates: start: 20170817
  3. BACTRIM [Concomitant]
     Active Substance: SULFAMETHOXAZOLE\TRIMETHOPRIM
     Indication: PRODUCT USED FOR UNKNOWN INDICATION
     Route: 065

REACTIONS (3)
  - Pain in extremity [Unknown]
  - Arthropod bite [Unknown]
  - Neuralgia [Unknown]

NARRATIVE: CASE EVENT DATE: 201709
